FAERS Safety Report 19143054 (Version 2)
Quarter: 2021Q2

REPORT INFORMATION
  Report Type: Report from Study
  Country: US (occurrence: US)
  Receive Date: 20210415
  Receipt Date: 20210504
  Transmission Date: 20210717
  Serious: Yes (Hospitalization, Other)
  Sender: FDA-Public Use
  Company Number: US-GILEAD-2021-0525494

PATIENT
  Age: 48 Year
  Sex: Male
  Weight: 63.04 kg

DRUGS (4)
  1. GABAPENTIN. [Concomitant]
     Active Substance: GABAPENTIN
     Dosage: UNK
     Dates: start: 202009
  2. POTASSIUM PHOSPHATE [POTASSIUM PHOSPHATE DIBASIC] [Concomitant]
  3. TENOFOVIR ALAFENAMIDE [Suspect]
     Active Substance: TENOFOVIR ALAFENAMIDE
     Indication: HEPATITIS B
     Dosage: 25 MG, QD
     Route: 048
     Dates: start: 201905
  4. SODIUM BICARBONATE. [Concomitant]
     Active Substance: SODIUM BICARBONATE

REACTIONS (1)
  - Osteosarcoma [Recovered/Resolved]

NARRATIVE: CASE EVENT DATE: 20200810
